FAERS Safety Report 6605233-1 (Version None)
Quarter: 2010Q1

REPORT INFORMATION
  Report Type: 
  Country: None (occurrence: None)
  Receive Date: 20100226
  Receipt Date: 20100218
  Transmission Date: 20100710
  Serious: Yes (Hospitalization)
  Sender: FDA-Public Use
  Company Number: DE-AMGEN-STX370108

PATIENT
  Sex: Male

DRUGS (18)
  1. MIMPARA [Suspect]
     Indication: HYPERPARATHYROIDISM SECONDARY
     Route: 048
     Dates: start: 20090928, end: 20091014
  2. PROGRAF [Concomitant]
  3. CELLCEPT [Concomitant]
  4. DECORTIN-H [Concomitant]
  5. BLOPRESS [Concomitant]
  6. RAMIPRIL [Concomitant]
  7. CARVEDILOL [Concomitant]
  8. AMLODIPINE [Concomitant]
  9. MOXONIDINE [Concomitant]
  10. MINOXIDIL [Concomitant]
  11. HYDROCHLOROTHIAZIDE [Concomitant]
  12. OMEPRAZOLE [Concomitant]
  13. ISCOVER [Concomitant]
  14. FOLSAN [Concomitant]
  15. SULFAMETHOXAZOLE AND TRIMETHOPRIM DOUBLE STRENGTH [Concomitant]
  16. AMPHOTERICIN B [Concomitant]
  17. CANDESARTAN [Concomitant]
  18. CLOPIDOGREL [Concomitant]

REACTIONS (4)
  - MYOCARDIAL INFARCTION [None]
  - NEPHROLITHIASIS [None]
  - RENAL FAILURE ACUTE [None]
  - TRANSPLANT FAILURE [None]
